FAERS Safety Report 15759616 (Version 4)
Quarter: 2019Q1

REPORT INFORMATION
  Report Type: Spontaneous
  Country: CA (occurrence: CA)
  Receive Date: 20181226
  Receipt Date: 20190308
  Transmission Date: 20190417
  Serious: Yes (Other)
  Sender: FDA-Public Use
  Company Number: CA-CELLTRION INC.-2018CA018468

PATIENT

DRUGS (8)
  1. INFLECTRA [Suspect]
     Active Substance: INFLIXIMAB-DYYB
     Dosage: 300 MG, EVERY 8 WEEKS)
     Route: 042
     Dates: start: 20180815
  2. INFLECTRA [Suspect]
     Active Substance: INFLIXIMAB-DYYB
     Dosage: 300 MG, CYCLIC (EVERY 8 WEEKS)
     Route: 042
     Dates: start: 20181214
  3. MIRENA [Concomitant]
     Active Substance: LEVONORGESTREL
     Dosage: UNK, IUD (INTRAUTERINE DEVICE)
  4. INFLECTRA [Suspect]
     Active Substance: INFLIXIMAB-DYYB
     Dosage: 300 MG, EVERY 8 WEEKS)
     Route: 042
     Dates: start: 20180103
  5. INFLECTRA [Suspect]
     Active Substance: INFLIXIMAB-DYYB
     Dosage: 300 MG, EVERY 8 WEEKS)
     Route: 042
     Dates: start: 20180620
  6. INFLECTRA [Suspect]
     Active Substance: INFLIXIMAB-DYYB
     Indication: CROHN^S DISEASE
     Dosage: 300 MG, EVERY 8 WEEKS)
     Route: 042
     Dates: start: 20171106
  7. INFLECTRA [Suspect]
     Active Substance: INFLIXIMAB-DYYB
     Dosage: 300 MG (6.52MG/KG), EVERY 8 WEEKS)
     Route: 042
     Dates: start: 20181010
  8. INFLECTRA [Suspect]
     Active Substance: INFLIXIMAB-DYYB
     Dosage: 300 MG, CYCLIC (EVERY 8 WEEKS)
     Route: 042
     Dates: start: 20190211

REACTIONS (12)
  - Drug ineffective [Unknown]
  - Abdominal pain upper [Recovered/Resolved]
  - Vomiting [Unknown]
  - Tooth disorder [Unknown]
  - Condition aggravated [Not Recovered/Not Resolved]
  - Musculoskeletal stiffness [Not Recovered/Not Resolved]
  - Oral herpes [Recovering/Resolving]
  - Haematochezia [Recovered/Resolved]
  - Discharge [Recovered/Resolved]
  - Inflammation [Unknown]
  - Sinusitis [Recovered/Resolved]
  - Gastrooesophageal reflux disease [Not Recovered/Not Resolved]

NARRATIVE: CASE EVENT DATE: 201802
